FAERS Safety Report 6150623-7 (Version None)
Quarter: 2009Q2

REPORT INFORMATION
  Report Type: 
  Country: None (occurrence: None)
  Receive Date: 20090408
  Receipt Date: 20090408
  Transmission Date: 20091009
  Serious: No
  Sender: FDA-Public Use
  Company Number: None

PATIENT
  Age: 51 Year
  Sex: Female
  Weight: 58.9676 kg

DRUGS (3)
  1. KENALOG [Suspect]
     Indication: BRONCHITIS
     Dosage: 1 SHOT
     Dates: start: 20080904, end: 20080904
  2. KENALOG [Suspect]
     Indication: EAR INFECTION
     Dosage: 1 SHOT
     Dates: start: 20080904, end: 20080904
  3. KENALOG [Suspect]
     Indication: SINUSITIS
     Dosage: 1 SHOT
     Dates: start: 20080904, end: 20080904

REACTIONS (2)
  - INJECTION SITE DISCOLOURATION [None]
  - INJECTION SITE REACTION [None]
